FAERS Safety Report 19433507 (Version 8)
Quarter: 2022Q4

REPORT INFORMATION
  Report Type: Spontaneous
  Country: IN (occurrence: IN)
  Receive Date: 20210617
  Receipt Date: 20221024
  Transmission Date: 20230113
  Serious: Yes (Death, Other)
  Sender: FDA-Public Use
  Company Number: IN-PFIZER INC-2021032881

PATIENT
  Age: 81 Year
  Sex: Male

DRUGS (9)
  1. DACOMITINIB [Suspect]
     Active Substance: DACOMITINIB
     Dosage: 45 MG
     Dates: start: 20200320
  2. DACOMITINIB [Suspect]
     Active Substance: DACOMITINIB
     Dosage: UNK
     Dates: start: 20201102
  3. DACOMITINIB [Suspect]
     Active Substance: DACOMITINIB
     Dosage: UNK
     Dates: start: 20201201
  4. DACOMITINIB [Suspect]
     Active Substance: DACOMITINIB
     Dosage: 30 MG, 1X/DAY
     Route: 048
     Dates: start: 20210114
  5. DACOMITINIB [Suspect]
     Active Substance: DACOMITINIB
     Dosage: 45 MG, 1X/DAY
     Route: 048
     Dates: end: 20210604
  6. DACOMITINIB [Suspect]
     Active Substance: DACOMITINIB
     Dosage: 30 MG, 1X/DAY
     Route: 048
     Dates: start: 20210604
  7. ZOLPIDEM TARTRATE [Concomitant]
     Active Substance: ZOLPIDEM TARTRATE
     Dosage: 5 MG
  8. CLINDAMYCIN [Concomitant]
     Active Substance: CLINDAMYCIN
     Dosage: UNK
  9. METOCLOPRAMIDE HYDROCHLORIDE [Concomitant]
     Active Substance: METOCLOPRAMIDE HYDROCHLORIDE
     Dosage: 1 DF

REACTIONS (7)
  - Death [Fatal]
  - Rash [Not Recovered/Not Resolved]
  - Oedema peripheral [Unknown]
  - Carcinoembryonic antigen increased [Unknown]
  - Sinus bradycardia [Unknown]
  - Insomnia [Unknown]
  - Procedural pain [Unknown]

NARRATIVE: CASE EVENT DATE: 20200320
